FAERS Safety Report 8596492-7 (Version None)
Quarter: 2012Q3

REPORT INFORMATION
  Report Type: 
  Country: None (occurrence: None)
  Receive Date: 20120815
  Receipt Date: 20120809
  Transmission Date: 20120928
  Serious: Yes (Hospitalization)
  Sender: FDA-Public Use
  Company Number: US-PFIZER INC-2012194540

PATIENT
  Age: 68 Year
  Sex: Female
  Weight: 107.9 kg

DRUGS (11)
  1. WELCHOL [Concomitant]
     Dosage: 625 MG, DAILY
  2. LYRICA [Suspect]
     Indication: FIBROMYALGIA
     Dosage: 75 MG, 2X/DAY
  3. TRAZODONE [Concomitant]
     Dosage: 150 MG, UNK
  4. METOPROLOL [Concomitant]
     Indication: HYPERTENSION
     Dosage: 25 MG, 2X/DAY
  5. FLEXERIL [Concomitant]
     Dosage: 10 MG, AS NEEDED
     Route: 048
  6. DICLOFENAC SODIUM [Concomitant]
     Dosage: 75 MG, 2X/DAY
  7. METFORMIN [Concomitant]
     Dosage: 500 MG, DAILY
  8. ZETIA [Concomitant]
     Dosage: 10 MG, DAILY
  9. HYDROCODONE [Concomitant]
     Indication: FIBROMYALGIA
     Dosage: UNK, ONE TO TWO TABLETS
     Route: 048
  10. QUINAPRIL [Concomitant]
     Indication: HYPERTENSION
     Dosage: 40 MG, UNK
  11. AMBIEN [Concomitant]
     Dosage: 10 MG, DAILY

REACTIONS (2)
  - OSTEOARTHRITIS [None]
  - MEDICATION ERROR [None]
